FAERS Safety Report 9515371 (Version 1)
Quarter: 2013Q3

REPORT INFORMATION
  Report Type: Spontaneous
  Country: JP (occurrence: JP)
  Receive Date: 20130911
  Receipt Date: 20130911
  Transmission Date: 20140515
  Serious: Yes (Other)
  Sender: FDA-Public Use
  Company Number: PHHY2013JP097802

PATIENT
  Age: 2 Year
  Sex: 0

DRUGS (3)
  1. NEORAL [Suspect]
     Indication: NEPHROTIC SYNDROME
     Route: 048
  2. DIURETICS [Concomitant]
  3. CAPTOPRIL [Concomitant]
     Route: 048

REACTIONS (10)
  - Cyanosis [Unknown]
  - Photopsia [Unknown]
  - Erythema [Unknown]
  - Dyspnoea [Unknown]
  - Somnolence [Unknown]
  - Blood potassium increased [Unknown]
  - Urine output decreased [Unknown]
  - Tremor [Unknown]
  - Acne [Unknown]
  - Drug ineffective [Unknown]
